FAERS Safety Report 16409928 (Version 3)
Quarter: 2022Q3

REPORT INFORMATION
  Report Type: Report from Study
  Country: CN (occurrence: CN)
  Receive Date: 20190610
  Receipt Date: 20220823
  Transmission Date: 20221027
  Serious: Yes (Death, Life-Threatening, Hospitalization)
  Sender: FDA-Public Use
  Company Number: CN-JNJFOC-20190602630

PATIENT
  Age: 46 Year
  Sex: Female
  Weight: 45 kg

DRUGS (8)
  1. SIRTURO [Suspect]
     Active Substance: BEDAQUILINE FUMARATE
     Indication: Tuberculosis
     Route: 048
     Dates: start: 20181221, end: 20190102
  2. SIRTURO [Suspect]
     Active Substance: BEDAQUILINE FUMARATE
     Route: 048
     Dates: start: 20190102, end: 20190602
  3. PARA-AMINOSALICYLIC ACID [Suspect]
     Active Substance: AMINOSALICYLIC ACID
     Indication: Tuberculosis
     Route: 048
     Dates: start: 20190322, end: 20190602
  4. LINEZOLID [Suspect]
     Active Substance: LINEZOLID
     Indication: Tuberculosis
     Route: 048
     Dates: start: 20181221, end: 20190602
  5. CYCLOSERINE [Suspect]
     Active Substance: CYCLOSERINE
     Indication: Tuberculosis
     Route: 048
     Dates: start: 20181221, end: 20190602
  6. CLOFAZIMINE [Suspect]
     Active Substance: CLOFAZIMINE
     Indication: Tuberculosis
     Route: 048
     Dates: start: 20181221, end: 20190322
  7. AMIKACIN [Suspect]
     Active Substance: AMIKACIN
     Indication: Tuberculosis
     Route: 030
     Dates: start: 20181221, end: 20190602
  8. GLICLAZIDE [Concomitant]
     Active Substance: GLICLAZIDE
     Indication: Product used for unknown indication
     Route: 065
     Dates: start: 20140901

REACTIONS (9)
  - Pneumonia [Fatal]
  - Respiratory failure [Fatal]
  - Loss of consciousness [Unknown]
  - Gastrointestinal disorder [Unknown]
  - Eating disorder [Unknown]
  - Abdominal pain [Unknown]
  - Electrolyte imbalance [Unknown]
  - Mobility decreased [Unknown]
  - Generalised oedema [Unknown]

NARRATIVE: CASE EVENT DATE: 20190501
